FAERS Safety Report 4510169-6 (Version None)
Quarter: 2004Q4

REPORT INFORMATION
  Report Type: 
  Country: None (occurrence: None)
  Receive Date: 20041119
  Receipt Date: 20020627
  Transmission Date: 20050328
  Serious: Yes (Other)
  Sender: FDA-Public Use
  Company Number: GB-2002-024441

PATIENT
  Age: 30 Year
  Sex: Female

DRUGS (1)
  1. MIRENA [Suspect]
     Dosage: 20 UG/DAY, CONT, ITNRA-UTERINE
     Route: 015
     Dates: start: 19990706, end: 20010424

REACTIONS (1)
  - GILBERT'S SYNDROME [None]
